FAERS Safety Report 8827830 (Version 1)
Quarter: 2012Q4

REPORT INFORMATION
  Report Type: 
  Country: FR (occurrence: FR)
  Receive Date: 20121008
  Receipt Date: 20121008
  Transmission Date: 20130627
  Serious: Yes (Hospitalization)
  Sender: FDA-Public Use
  Company Number: FR-JNJFOC-20121001758

PATIENT
  Age: 59 Year
  Sex: Male

DRUGS (2)
  1. ZALDIAR [Suspect]
     Indication: TENDONITIS
     Route: 048
     Dates: start: 20080524, end: 20080524
  2. DICLOFENAC SODIUM [Suspect]
     Indication: TENDONITIS
     Route: 061
     Dates: start: 20080524, end: 20080524

REACTIONS (1)
  - Acute generalised exanthematous pustulosis [Recovered/Resolved]
